FAERS Safety Report 5162441-7 (Version None)
Quarter: 2006Q4

REPORT INFORMATION
  Report Type: 
  Country: None (occurrence: None)
  Receive Date: 20061128
  Receipt Date: 20061128
  Transmission Date: 20070319
  Serious: Yes (Other)
  Sender: FDA-Public Use
  Company Number: None

PATIENT
  Age: 45 Year
  Sex: Female
  Weight: 103.4201 kg

DRUGS (4)
  1. CIPROFLOXACIN [Suspect]
     Indication: HIDRADENITIS
     Dosage: 500 MG ONE DOSE ORAL
     Route: 048
     Dates: start: 20060309
  2. CIPROFLOXACIN [Suspect]
     Indication: ROSACEA
     Dosage: 500 MG ONE DOSE ORAL
     Route: 048
     Dates: start: 20060309
  3. ORACEA [Suspect]
     Indication: HIDRADENITIS
     Dosage: 40 MG ONE PILL TAKEN FOR 2 DAYS ORAL
     Route: 048
     Dates: start: 20061102, end: 20061103
  4. ORACEA [Suspect]
     Indication: ROSACEA
     Dosage: 40 MG ONE PILL TAKEN FOR 2 DAYS ORAL
     Route: 048
     Dates: start: 20061102, end: 20061103

REACTIONS (4)
  - BACK PAIN [None]
  - BUTTOCK PAIN [None]
  - RADICULOPATHY [None]
  - WEIGHT BEARING DIFFICULTY [None]
